FAERS Safety Report 9282911 (Version 1)
Quarter: 2013Q2

REPORT INFORMATION
  Report Type: Report from Study
  Country: BR (occurrence: BR)
  Receive Date: 20130510
  Receipt Date: 20130510
  Transmission Date: 20140414
  Serious: Yes (Other)
  Sender: FDA-Public Use
  Company Number: BR-ABBOTT-13P-020-1081005-00

PATIENT
  Age: 49 Year
  Sex: Male
  Weight: 77 kg

DRUGS (6)
  1. HUMIRA [Suspect]
     Indication: ANKYLOSING SPONDYLITIS
     Route: 058
     Dates: start: 20121107, end: 201302
  2. METHOTREXATE [Concomitant]
     Indication: ANKYLOSING SPONDYLITIS
     Route: 048
     Dates: start: 2012
  3. NIMESULIDE/ FAMOTIDINE/ CYCLOBENZAPRINE/ AMYTRIPTILINE [Concomitant]
     Indication: ANKYLOSING SPONDYLITIS
     Dosage: 100/60/10/25MG-1 TABLET AT NIGHT
     Route: 048
     Dates: start: 2012
  4. NIMESULIDE/ CARISOPRODOL/ PREDNISOLONE/ FAMOTIDINE [Concomitant]
     Indication: ANKYLOSING SPONDYLITIS
     Dosage: 100/100/10/60MG
     Route: 048
  5. DICLOFENAC DIETHYLAMINE [Concomitant]
     Indication: PAIN
     Dosage: 1 TABLET IF NEEDED
     Route: 048
  6. OSTEOFIX [Concomitant]
     Indication: VITAMIN SUPPLEMENTATION
     Route: 048
     Dates: start: 201303

REACTIONS (7)
  - Wound [Recovering/Resolving]
  - Fall [Recovering/Resolving]
  - Conjunctivitis [Not Recovered/Not Resolved]
  - Eye irritation [Not Recovered/Not Resolved]
  - Hypoaesthesia [Recovering/Resolving]
  - Hypoaesthesia [Recovering/Resolving]
  - Bone marrow disorder [Unknown]
